FAERS Safety Report 18801657 (Version 1)
Quarter: 2021Q1

REPORT INFORMATION
  Report Type: Spontaneous
  Country: US (occurrence: US)
  Receive Date: 20210128
  Receipt Date: 20210128
  Transmission Date: 20210419
  Serious: No
  Sender: FDA-Public Use
  Company Number: US-PFIZER INC-2019253439

PATIENT
  Age: 72 Year
  Sex: Female

DRUGS (1)
  1. LYRICA [Suspect]
     Active Substance: PREGABALIN
     Indication: FIBROMYALGIA
     Dosage: 75 MG, 3X/DAY, [1 CAPSULE BY MOUTH 3 TIMES DAILY]
     Route: 048

REACTIONS (3)
  - Feeling abnormal [Unknown]
  - Frustration tolerance decreased [Unknown]
  - Depressed mood [Unknown]
